FAERS Safety Report 4446915-X (Version None)
Quarter: 2004Q4

REPORT INFORMATION
  Report Type: 
  Country: None (occurrence: None)
  Receive Date: 20040908
  Receipt Date: 20040820
  Transmission Date: 20050328
  Serious: Yes (Hospitalization)
  Sender: FDA-Public Use
  Company Number: DSA_24866_2004

PATIENT
  Age: 72 Year
  Sex: Female
  Weight: 60 kg

DRUGS (4)
  1. ENALAPRIL MALEATE AND HYDROCHLOROTHIAZIDE [Suspect]
     Dosage: DF QD PO
     Route: 048
  2. NORFLOXACIN [Suspect]
     Indication: URINARY TRACT INFECTION
     Dosage: 400 MG BID PO
     Route: 048
     Dates: start: 20040712, end: 20040717
  3. PROPRANOLOL HYDROCHLORIDE [Suspect]
     Dosage: 160 MG Q DAY PO
     Route: 048
  4. LAMIVUDINE [Suspect]
     Dosage: 100 MG Q DAY PO
     Route: 048

REACTIONS (15)
  - ANOREXIA [None]
  - ASTERIXIS [None]
  - BILIRUBIN CONJUGATED INCREASED [None]
  - BLOOD BILIRUBIN INCREASED [None]
  - CONFUSIONAL STATE [None]
  - DEHYDRATION [None]
  - EXPRESSIVE LANGUAGE DISORDER [None]
  - FOETOR HEPATICUS [None]
  - HYPERTHERMIA [None]
  - HYPERTONIA [None]
  - JAUNDICE [None]
  - NAUSEA [None]
  - PAIN [None]
  - SOMNOLENCE [None]
  - URINARY RETENTION [None]
